FAERS Safety Report 4451189-X (Version None)
Quarter: 2004Q3

REPORT INFORMATION
  Report Type: 
  Country: None (occurrence: None)
  Receive Date: 20040916
  Receipt Date: 20040906
  Transmission Date: 20050211
  Serious: Yes (Hospitalization, Other)
  Sender: FDA-Public Use
  Company Number: SE-BRISTOL-MYERS SQUIBB COMPANY-12694238

PATIENT
  Age: 67 Year
  Sex: Female

DRUGS (1)
  1. APROVEL TABS [Suspect]
     Dosage: 2 OVERDOSES;12 TABS (300 MG)= 3.6G, AND 42 TABS (300MG)= 12.6G
     Route: 048
     Dates: start: 20030101

REACTIONS (3)
  - BLOOD PRESSURE DECREASED [None]
  - ELECTROCARDIOGRAM QT CORRECTED INTERVAL PROLONGED [None]
  - OVERDOSE [None]
